FAERS Safety Report 25027747 (Version 1)
Quarter: 2025Q1

REPORT INFORMATION
  Report Type: Spontaneous
  Country: US (occurrence: US)
  Receive Date: 20250301
  Receipt Date: 20250301
  Transmission Date: 20250409
  Serious: No
  Sender: SANOFI AVENTIS
  Company Number: US-SA-2025SA055557

PATIENT
  Age: 69 Year
  Sex: Male

DRUGS (6)
  1. DUPIXENT [Suspect]
     Active Substance: DUPILUMAB
     Indication: Asthma
     Dosage: 300 MG, QOW
     Route: 058
     Dates: start: 20240724
  2. BUDESONIDE [Concomitant]
     Active Substance: BUDESONIDE
  3. IPRATROPIUM [Concomitant]
     Active Substance: IPRATROPIUM
  4. MOMETASONE [Concomitant]
     Active Substance: MOMETASONE
  5. SODIUM CHLORIDE [Concomitant]
     Active Substance: SODIUM CHLORIDE
  6. TRIKAFTA [Concomitant]
     Active Substance: ELEXACAFTOR\IVACAFTOR\TEZACAFTOR

REACTIONS (2)
  - Sleep disorder [Unknown]
  - Impaired quality of life [Unknown]
